FAERS Safety Report 9353166 (Version 5)
Quarter: 2014Q4

REPORT INFORMATION
  Report Type: Report from Study
  Country: US (occurrence: US)
  Receive Date: 20130618
  Receipt Date: 20141024
  Transmission Date: 20150529
  Serious: Yes (Hospitalization, Disabling, Other)
  Sender: FDA-Public Use
  Company Number: US-ASTELLAS-2013US006262

PATIENT
  Age: 75 Year
  Sex: Female

DRUGS (14)
  1. RITUXAN [Suspect]
     Active Substance: RITUXIMAB
     Indication: CHRONIC LYMPHOCYTIC LEUKAEMIA
     Route: 042
     Dates: start: 20090808, end: 20091123
  2. FLUDARABINE [Suspect]
     Active Substance: FLUDARABINE PHOSPHATE
     Indication: CHRONIC LYMPHOCYTIC LEUKAEMIA
     Dosage: 6 CYCLES, CFR
     Route: 065
     Dates: start: 20090808, end: 20091123
  3. GABAPENTIN. [Concomitant]
     Active Substance: GABAPENTIN
     Indication: NEUROPATHY PERIPHERAL
     Dosage: UNK, UNKNOWN FREQ.
     Route: 065
  4. ARIMIDEX [Concomitant]
     Active Substance: ANASTROZOLE
     Indication: PRODUCT USED FOR UNKNOWN INDICATION
     Dosage: UNK, UNKNOWN FREQ.
     Route: 065
  5. GLOBULIN [Concomitant]
     Active Substance: HUMAN IMMUNOGLOBULIN G
     Indication: PRODUCT USED FOR UNKNOWN INDICATION
     Dosage: UNK UNK, UNKNOWN FREQ.
     Route: 065
  6. ERLOTINIB [Suspect]
     Active Substance: ERLOTINIB
     Indication: BREAST CANCER STAGE II
     Route: 048
     Dates: start: 20120309, end: 20121121
  7. ERLOTINIB [Suspect]
     Active Substance: ERLOTINIB
     Indication: CHRONIC LYMPHOCYTIC LEUKAEMIA
  8. CYTOXAN [Suspect]
     Active Substance: CYCLOPHOSPHAMIDE
     Indication: CHRONIC LYMPHOCYTIC LEUKAEMIA
     Dosage: 6 CYCLES,CFR
     Route: 065
     Dates: start: 20090808, end: 20091123
  9. ERLOTINIB [Suspect]
     Active Substance: ERLOTINIB
     Indication: INFECTION
  10. FEMARA [Concomitant]
     Active Substance: LETROZOLE
     Indication: PRODUCT USED FOR UNKNOWN INDICATION
     Route: 065
     Dates: start: 20120309
  11. CYMBALTA [Concomitant]
     Active Substance: DULOXETINE HYDROCHLORIDE
     Indication: PRODUCT USED FOR UNKNOWN INDICATION
     Dosage: UNK, UNKNOWN FREQ.
     Route: 065
  12. ERLOTINIB [Suspect]
     Active Substance: ERLOTINIB
     Indication: HYPOGAMMAGLOBULINAEMIA
     Dosage: 150 MG, 5 DAYS/WEEK
     Route: 048
     Dates: start: 20130204
  13. VICODIN [Concomitant]
     Active Substance: ACETAMINOPHEN\HYDROCODONE BITARTRATE
     Indication: PRODUCT USED FOR UNKNOWN INDICATION
     Dosage: UNK, UNKNOWN FREQ.
     Route: 065
  14. LEVAQUIN [Concomitant]
     Active Substance: LEVOFLOXACIN
     Indication: PRODUCT USED FOR UNKNOWN INDICATION
     Dosage: UNK UNK, UNKNOWN FREQ.
     Route: 065

REACTIONS (23)
  - Ligament sprain [Unknown]
  - Lymphoedema [Unknown]
  - Lip pain [Unknown]
  - Deafness unilateral [Unknown]
  - Pyrexia [Unknown]
  - Hypoaesthesia [Recovering/Resolving]
  - Flank pain [Unknown]
  - Stomatitis [Recovering/Resolving]
  - Rash [Not Recovered/Not Resolved]
  - Epistaxis [Unknown]
  - Squamous cell carcinoma [Recovered/Resolved with Sequelae]
  - Breast cancer metastatic [Not Recovered/Not Resolved]
  - Nausea [Recovering/Resolving]
  - Cellulitis [Recovered/Resolved]
  - Thrombocytopenia [Unknown]
  - Skin exfoliation [Recovered/Resolved with Sequelae]
  - Hearing impaired [Unknown]
  - Hot flush [Unknown]
  - Hypoacusis [Unknown]
  - Appetite disorder [Recovered/Resolved]
  - Neuropathy peripheral [Unknown]
  - Fatigue [Unknown]
  - Product use issue [Unknown]

NARRATIVE: CASE EVENT DATE: 201105
